FAERS Safety Report 4732883-X (Version None)
Quarter: 2005Q3

REPORT INFORMATION
  Report Type: 
  Country: None (occurrence: None)
  Receive Date: 20050803
  Receipt Date: 20050426
  Transmission Date: 20060218
  Serious: No
  Sender: FDA-Public Use
  Company Number: US-GLAXOSMITHKLINE-A0555810A

PATIENT
  Age: 69 Year
  Sex: Female

DRUGS (4)
  1. AVANDAMET [Suspect]
     Route: 048
  2. LOVASTATIN [Concomitant]
  3. QUINAPRIL [Concomitant]
  4. IBUPROFEN [Concomitant]
     Route: 065

REACTIONS (1)
  - ARTHRALGIA [None]
